FAERS Safety Report 6166543-8 (Version None)
Quarter: 2009Q2

REPORT INFORMATION
  Report Type: 
  Country: None (occurrence: None)
  Receive Date: 20090424
  Receipt Date: 20090417
  Transmission Date: 20091009
  Serious: Yes (Hospitalization)
  Sender: FDA-Public Use
  Company Number: GB-ROCHE-624507

PATIENT
  Sex: Male
  Weight: 108 kg

DRUGS (9)
  1. ORLISTAT [Suspect]
     Indication: OBESITY
     Route: 048
     Dates: start: 20080630, end: 20090203
  2. COMPETACT [Concomitant]
     Route: 048
  3. ASPIRIN [Concomitant]
     Indication: UNEVALUABLE EVENT
     Route: 048
  4. RAMIPRIL [Concomitant]
     Indication: BLOOD PRESSURE
     Route: 048
  5. INDAPAMIDE [Concomitant]
     Indication: BLOOD PRESSURE
     Route: 048
  6. MOTENS [Concomitant]
     Indication: BLOOD PRESSURE
     Route: 048
  7. SIMVASTATIN [Concomitant]
     Route: 048
  8. AVANDAMET [Concomitant]
     Dosage: STRENGTH REPORTED AS 15/850
     Route: 048
  9. SIBUTRAMINE [Concomitant]
     Dates: start: 20090201

REACTIONS (1)
  - URINARY RETENTION [None]
